FAERS Safety Report 14239933 (Version 1)
Quarter: 2017Q4

REPORT INFORMATION
  Report Type: Spontaneous
  Country: US (occurrence: US)
  Receive Date: 20171128
  Receipt Date: 20171128
  Transmission Date: 20180321
  Serious: Yes (Other)
  Sender: FDA-Public Use
  Company Number: None

PATIENT
  Age: 77 Year
  Sex: Male
  Weight: 74.25 kg

DRUGS (8)
  1. TYLENOL [Concomitant]
     Active Substance: ACETAMINOPHEN
  2. AMIODARONE [Suspect]
     Active Substance: AMIODARONE
     Indication: TACHYCARDIA
     Route: 042
     Dates: start: 20171018, end: 20171021
  3. ELIQUIS [Concomitant]
     Active Substance: APIXABAN
  4. FINASTERIDE. [Concomitant]
     Active Substance: FINASTERIDE
  5. CARVEDILOL. [Concomitant]
     Active Substance: CARVEDILOL
  6. ENALAPRIL [Concomitant]
     Active Substance: ENALAPRIL
  7. ATORVASTATIN [Concomitant]
     Active Substance: ATORVASTATIN
  8. HYTRIN [Concomitant]
     Active Substance: TERAZOSIN HYDROCHLORIDE

REACTIONS (1)
  - Mood swings [None]

NARRATIVE: CASE EVENT DATE: 20171018
